FAERS Safety Report 20807559 (Version 1)
Quarter: 2022Q2

REPORT INFORMATION
  Report Type: Spontaneous
  Country: DE (occurrence: DE)
  Receive Date: 20220510
  Receipt Date: 20220510
  Transmission Date: 20220721
  Serious: Yes (Life-Threatening, Other)
  Sender: FDA-Public Use
  Company Number: DE-ASTELLAS-2022US016922

PATIENT
  Age: 56 Year
  Sex: Male

DRUGS (4)
  1. REGADENOSON [Suspect]
     Active Substance: REGADENOSON
     Indication: Diagnostic procedure
     Dosage: UNK UNK, TOTAL DOSE (SINGLE)
     Route: 065
  2. REGADENOSON [Suspect]
     Active Substance: REGADENOSON
     Indication: Diagnostic procedure
     Dosage: UNK UNK, TOTAL DOSE (SINGLE)
     Route: 065
  3. REGADENOSON [Suspect]
     Active Substance: REGADENOSON
     Indication: Diagnostic procedure
     Dosage: UNK UNK, TOTAL DOSE (SINGLE)
     Route: 065
  4. REGADENOSON [Suspect]
     Active Substance: REGADENOSON
     Indication: Diagnostic procedure
     Dosage: UNK UNK, TOTAL DOSE (SINGLE)
     Route: 065

REACTIONS (2)
  - Atrioventricular block [Unknown]
  - Cardiac arrest [Recovered/Resolved]
